FAERS Safety Report 6602423-9 (Version None)
Quarter: 2010Q1

REPORT INFORMATION
  Report Type: 
  Country: None (occurrence: None)
  Receive Date: 20100225
  Receipt Date: 20100216
  Transmission Date: 20100710
  Serious: Yes (Other)
  Sender: FDA-Public Use
  Company Number: PHHY2010GR04584

PATIENT
  Age: 58 Year
  Sex: Male

DRUGS (3)
  1. CERTICAN [Suspect]
     Indication: RENAL TRANSPLANT
     Dosage: ONE YEAR AGO
  2. MYFORTIC [Concomitant]
  3. PREDNISOLONE [Concomitant]

REACTIONS (2)
  - ARRHYTHMIA [None]
  - DYSPNOEA [None]
